FAERS Safety Report 5963332-1 (Version None)
Quarter: 2008Q4

REPORT INFORMATION
  Report Type: 
  Country: None (occurrence: None)
  Receive Date: 20081124
  Receipt Date: 20081120
  Transmission Date: 20090506
  Serious: Yes (Other)
  Sender: FDA-Public Use
  Company Number: A0750117A

PATIENT
  Age: 6 Year
  Sex: Female

DRUGS (3)
  1. VENTOLIN [Suspect]
     Indication: ASTHMA
     Route: 065
  2. FLOVENT [Suspect]
     Dosage: 2PUFF TWICE PER DAY
     Route: 055
  3. PREDNISONE TAB [Suspect]
     Dosage: 40MG UNKNOWN
     Route: 065

REACTIONS (4)
  - ABNORMAL BEHAVIOUR [None]
  - ASTHMA [None]
  - IRRITABILITY [None]
  - MOOD ALTERED [None]
